FAERS Safety Report 16098900 (Version 1)
Quarter: 2019Q1

REPORT INFORMATION
  Report Type: Spontaneous
  Country: US (occurrence: US)
  Receive Date: 20190218
  Receipt Date: 20190218
  Transmission Date: 20190418
  Serious: No
  Sender: FDA-Public Use
  Company Number: None

PATIENT
  Age: 57 Year
  Sex: Female
  Weight: 63.05 kg

DRUGS (2)
  1. MESALAMINE (ASACOL GENERIC) [Suspect]
     Active Substance: MESALAMINE
     Indication: COLITIS
     Route: 048
  2. MESALAMINE (ASACOL GENERIC) [Suspect]
     Active Substance: MESALAMINE
     Indication: COLITIS ULCERATIVE
     Route: 048

REACTIONS (1)
  - Therapeutic response changed [None]
